FAERS Safety Report 24582953 (Version 2)
Quarter: 2025Q3

REPORT INFORMATION
  Report Type: Spontaneous
  Country: CN (occurrence: CN)
  Receive Date: 20241106
  Receipt Date: 20250901
  Transmission Date: 20251021
  Serious: Yes (Other)
  Sender: BEIGENE
  Company Number: CN-ROCHE-3569274

PATIENT
  Age: 73 Year
  Weight: 65.5 kg

DRUGS (17)
  1. BRUKINSA [Suspect]
     Active Substance: ZANUBRUTINIB
     Indication: Diffuse large B-cell lymphoma
  2. LENALIDOMIDE [Suspect]
     Active Substance: LENALIDOMIDE
     Indication: Diffuse large B-cell lymphoma
  3. POLATUZUMAB VEDOTIN [Suspect]
     Active Substance: POLATUZUMAB VEDOTIN
     Indication: Diffuse large B-cell lymphoma
  4. MABTHERA [Suspect]
     Active Substance: RITUXIMAB
     Indication: Diffuse large B-cell lymphoma
  5. DINUTUXIMAB [Suspect]
     Active Substance: DINUTUXIMAB
     Indication: Diffuse large B-cell lymphoma
  6. PROMETHAZINE [Concomitant]
     Active Substance: PROMETHAZINE HYDROCHLORIDE
  7. ENTECAVIR [Concomitant]
     Active Substance: ENTECAVIR
  8. SULFAMETHOXAZOLE [Concomitant]
     Active Substance: SULFAMETHOXAZOLE
  9. FLUCONAZOLE [Concomitant]
     Active Substance: FLUCONAZOLE
  10. MAGNESIUM ISOGLYCYRRHIZINATE [Concomitant]
     Active Substance: MAGNESIUM ISOGLYCYRRHIZINATE
  11. METHYLPREDNISOLONE SODIUM SUCCINATE [Concomitant]
     Active Substance: METHYLPREDNISOLONE SODIUM SUCCINATE
  12. ACYCLOVIR [Concomitant]
     Active Substance: ACYCLOVIR
  13. ALBUMIN HUMAN [Concomitant]
     Active Substance: ALBUMIN HUMAN
  14. POTASSIUM CHLORIDE [Concomitant]
     Active Substance: POTASSIUM CHLORIDE
  15. INSULIN HUMAN [Concomitant]
     Active Substance: INSULIN HUMAN
  16. LIMONENE, (+/-)- [Concomitant]
     Active Substance: LIMONENE, (+/-)-
  17. EUCALYPTOL [Concomitant]
     Active Substance: EUCALYPTOL

REACTIONS (17)
  - Pneumocystis jirovecii pneumonia [Unknown]
  - Pneumonia viral [Unknown]
  - Blood alkaline phosphatase increased [Unknown]
  - Pseudomonas infection [Unknown]
  - Urinary tract infection fungal [Unknown]
  - Alanine aminotransferase increased [Unknown]
  - Neutrophil count decreased [Unknown]
  - Lymphocyte count decreased [Unknown]
  - Gamma-glutamyltransferase increased [Unknown]
  - Aspartate aminotransferase increased [Unknown]
  - Bacterial infection [Unknown]
  - White blood cell count decreased [Unknown]
  - Platelet count decreased [Unknown]
  - Blood glucose increased [Unknown]
  - Febrile infection [Unknown]
  - COVID-19 [Unknown]
  - Off label use [Unknown]
